FAERS Safety Report 7019236-9 (Version None)
Quarter: 2010Q3

REPORT INFORMATION
  Report Type: 
  Country: None (occurrence: None)
  Receive Date: 20100928
  Receipt Date: 20100923
  Transmission Date: 20110219
  Serious: Yes (Hospitalization, Other)
  Sender: FDA-Public Use
  Company Number: DE-AMGEN-QUU439014

PATIENT
  Age: 67 Year
  Sex: Female

DRUGS (6)
  1. ENBREL [Suspect]
     Indication: RHEUMATOID ARTHRITIS
     Route: 058
     Dates: start: 20070201
  2. CALCIUM [Concomitant]
  3. MAGNESIUM [Concomitant]
     Dosage: UNKNOWN
  4. AMLODIPINE [Concomitant]
     Dosage: UNKNOWN
  5. ALENDRONATE SODIUM [Concomitant]
     Dosage: UNKNOWN
  6. UNSPECIFIED MEDICATION [Concomitant]
     Route: 047

REACTIONS (6)
  - BACK PAIN [None]
  - FALL [None]
  - HIP SURGERY [None]
  - LENTIGO [None]
  - LOSS OF CONSCIOUSNESS [None]
  - RIB FRACTURE [None]
